FAERS Safety Report 18889279 (Version 1)
Quarter: 2021Q1

REPORT INFORMATION
  Report Type: Spontaneous
  Country: BR (occurrence: BR)
  Receive Date: 20210213
  Receipt Date: 20210213
  Transmission Date: 20210420
  Serious: Yes (Hospitalization)
  Sender: FDA-Public Use
  Company Number: BR-SA-2021SA046905

PATIENT
  Sex: Male

DRUGS (1)
  1. OMNIC [Suspect]
     Active Substance: TAMSULOSIN HYDROCHLORIDE
     Indication: PROSTATIC DISORDER
     Dosage: 0.4 MG, UNKNOWN FREQ.

REACTIONS (6)
  - Pain [Unknown]
  - Asthenia [Unknown]
  - Blister [Unknown]
  - Pyrexia [Unknown]
  - Off label use [Unknown]
  - Depression [Unknown]
